FAERS Safety Report 7960899-9 (Version None)
Quarter: 2011Q4

REPORT INFORMATION
  Report Type: 
  Country: None (occurrence: None)
  Receive Date: 20111201
  Receipt Date: 20111115
  Transmission Date: 20120403
  Serious: Yes (Death, Hospitalization)
  Sender: FDA-Public Use
  Company Number: 2009-071

PATIENT
  Age: 58 Year
  Sex: Male

DRUGS (4)
  1. ABILIFY [Concomitant]
  2. PROLIXIN [Concomitant]
  3. FAZACLO ODT [Suspect]
     Dosage: 250 MG, QD, ORAL
     Route: 048
     Dates: start: 20090326, end: 20090401
  4. COGENTIN [Concomitant]

REACTIONS (9)
  - HEPATITIS [None]
  - MENTAL DISORDER [None]
  - ABNORMAL BEHAVIOUR [None]
  - HEPATIC CIRRHOSIS [None]
  - SCHIZOPHRENIA [None]
  - ESSENTIAL HYPERTENSION [None]
  - SKIN CANCER [None]
  - HEPATITIS C [None]
  - CHRONIC OBSTRUCTIVE PULMONARY DISEASE [None]
